FAERS Safety Report 7678505-X (Version None)
Quarter: 2011Q3

REPORT INFORMATION
  Report Type: 
  Country: None (occurrence: None)
  Receive Date: 20110811
  Receipt Date: 20110810
  Transmission Date: 20111222
  Serious: No
  Sender: FDA-Public Use
  Company Number: US-BAYER-2011-056625

PATIENT
  Sex: Male
  Weight: 71.202 kg

DRUGS (1)
  1. AVELOX [Suspect]
     Indication: SINUSITIS
     Dosage: 400 MG, ONCE
     Route: 048
     Dates: start: 20110601, end: 20110601

REACTIONS (4)
  - PARAESTHESIA [None]
  - PRURITUS GENERALISED [None]
  - URTICARIA [None]
  - HYPERSENSITIVITY [None]
